FAERS Safety Report 9031187 (Version 2)
Quarter: 2013Q2

REPORT INFORMATION
  Report Type: Spontaneous
  Country: US (occurrence: US)
  Receive Date: 20130123
  Receipt Date: 20130607
  Transmission Date: 20140414
  Serious: Yes (Other)
  Sender: FDA-Public Use
  Company Number: CHPA2013US001146

PATIENT
  Age: 58 Year
  Sex: Female

DRUGS (1)
  1. HABITROL [Suspect]
     Indication: SMOKING CESSATION THERAPY
     Dosage: 21 MG, QD
     Route: 062
     Dates: start: 20130113, end: 20130114

REACTIONS (4)
  - Influenza [Recovering/Resolving]
  - Feeling abnormal [Unknown]
  - Treatment noncompliance [Unknown]
  - Overdose [Unknown]
